FAERS Safety Report 6883704-0 (Version None)
Quarter: 2010Q3

REPORT INFORMATION
  Report Type: 
  Country: None (occurrence: None)
  Receive Date: 20100729
  Receipt Date: 20100723
  Transmission Date: 20110219
  Serious: Yes (Other)
  Sender: FDA-Public Use
  Company Number: A0872102A

PATIENT
  Age: 76 Year
  Sex: Female

DRUGS (3)
  1. FLOVENT [Suspect]
     Indication: ASTHMA
     Dosage: 44MCG PER DAY
     Route: 055
     Dates: start: 20000101
  2. BENICAR [Concomitant]
  3. JANUMET [Concomitant]

REACTIONS (1)
  - INTRAOCULAR PRESSURE INCREASED [None]
